FAERS Safety Report 7129522-X (Version None)
Quarter: 2010Q4

REPORT INFORMATION
  Report Type: 
  Country: None (occurrence: None)
  Receive Date: 20101130
  Receipt Date: 20101113
  Transmission Date: 20110411
  Serious: No
  Sender: FDA-Public Use
  Company Number: US-B.I. PHARMACEUTICALS,INC./RIDGEFIELD-2010-BP-12812BP

PATIENT
  Age: 46 Year
  Sex: Male

DRUGS (2)
  1. ZANTAC 150 [Suspect]
     Indication: DYSPEPSIA
     Route: 048
     Dates: start: 20101001
  2. ZANTAC 75 TABLETS [Concomitant]
     Indication: DYSPEPSIA
     Route: 048
     Dates: start: 20080101, end: 20101001

REACTIONS (1)
  - DRUG INEFFECTIVE [None]
